FAERS Safety Report 6861473-8 (Version None)
Quarter: 2010Q3

REPORT INFORMATION
  Report Type: 
  Country: None (occurrence: None)
  Receive Date: 20100715
  Receipt Date: 20100701
  Transmission Date: 20110219
  Serious: Yes (Hospitalization)
  Sender: FDA-Public Use
  Company Number: FRP10000496

PATIENT
  Age: 82 Year
  Sex: Male
  Weight: 90 kg

DRUGS (5)
  1. ACTONEL [Suspect]
     Indication: SPINAL FRACTURE
     Dosage: 35 MG, 1 /WEEK, ORAL
     Route: 048
     Dates: start: 20080510, end: 20100301
  2. ACTONEL [Suspect]
     Indication: SPINAL FRACTURE
     Dosage: 35 MG, 1 /WEEK, ORAL
     Route: 048
     Dates: start: 20100402, end: 20100426
  3. PREVISCAN (FLUINDIONE) TABLET [Concomitant]
  4. ALFUZOSIN (ALFUZOSIN) [Concomitant]
  5. DAFALGAN /00020001/ (PARACETAMOL) [Concomitant]

REACTIONS (1)
  - HYPONATRAEMIA [None]
